FAERS Safety Report 8258328-3 (Version None)
Quarter: 2012Q2

REPORT INFORMATION
  Report Type: 
  Country: None (occurrence: None)
  Receive Date: 20120403
  Receipt Date: 20120403
  Transmission Date: 20120825
  Serious: No
  Sender: FDA-Public Use
  Company Number: None

PATIENT
  Sex: Female

DRUGS (1)
  1. SUBOXONE [Suspect]
     Indication: DEPENDENCE
     Dosage: 8MG 1 QD SUBLINGUAL
     Route: 060
     Dates: start: 20120101, end: 20120301

REACTIONS (1)
  - STOMATITIS [None]
